FAERS Safety Report 16853052 (Version 1)
Quarter: 2019Q3

REPORT INFORMATION
  Report Type: Spontaneous
  Country: US (occurrence: US)
  Receive Date: 20190802
  Receipt Date: 20190802
  Transmission Date: 20191005
  Serious: Yes (Hospitalization)
  Sender: FDA-Public Use
  Company Number: None

PATIENT
  Age: 40 Year
  Sex: Female

DRUGS (8)
  1. ALBUTEROL. [Concomitant]
     Active Substance: ALBUTEROL
  2. ASPIRIN. [Concomitant]
     Active Substance: ASPIRIN
  3. SULFAMETHOXAZOLE/TRIMETHROPRIM [Suspect]
     Active Substance: SULFAMETHOXAZOLE\TRIMETHOPRIM
     Indication: INFECTION
     Dosage: ?          OTHER DOSE:800/160 MG;?
     Route: 048
     Dates: start: 20190504, end: 20190513
  4. CYCLOBENZAPRINE. [Concomitant]
     Active Substance: CYCLOBENZAPRINE
  5. FLUTICASONE AND SALMETEROL [Concomitant]
     Active Substance: FLUTICASONE PROPIONATE\SALMETEROL XINAFOATE
  6. SUMATRIPTAN. [Concomitant]
     Active Substance: SUMATRIPTAN
  7. GABAPENTIN. [Concomitant]
     Active Substance: GABAPENTIN
  8. IBUPROFEN. [Concomitant]
     Active Substance: IBUPROFEN

REACTIONS (8)
  - Rash pruritic [None]
  - Stevens-Johnson syndrome [None]
  - Chills [None]
  - Conjunctivitis [None]
  - Mucosal inflammation [None]
  - Throat irritation [None]
  - Pyrexia [None]
  - Lip swelling [None]

NARRATIVE: CASE EVENT DATE: 20190514
